FAERS Safety Report 24888498 (Version 1)
Quarter: 2025Q1

REPORT INFORMATION
  Report Type: Spontaneous
  Country: JP (occurrence: JP)
  Receive Date: 20250127
  Receipt Date: 20250127
  Transmission Date: 20250409
  Serious: Yes (Disabling, Other)
  Sender: ACCORD
  Company Number: JP-MLMSERVICE-20250115-PI346477-00218-4

PATIENT
  Age: 14 Year
  Sex: Male

DRUGS (3)
  1. CISPLATIN [Suspect]
     Active Substance: CISPLATIN
     Indication: Osteosarcoma
  2. METHOTREXATE [Suspect]
     Active Substance: METHOTREXATE
     Indication: Osteosarcoma
  3. DOXORUBICIN [Suspect]
     Active Substance: DOXORUBICIN
     Indication: Osteosarcoma

REACTIONS (4)
  - Bone formation decreased [Recovering/Resolving]
  - Device failure [Unknown]
  - Bone atrophy [Recovering/Resolving]
  - Fall [Unknown]
